FAERS Safety Report 4449298-4 (Version None)
Quarter: 2004Q3

REPORT INFORMATION
  Report Type: 
  Country: None (occurrence: None)
  Receive Date: 20040913
  Receipt Date: 20040830
  Transmission Date: 20050211
  Serious: Yes (Hospitalization)
  Sender: FDA-Public Use
  Company Number: 2003-BP-00227BP

PATIENT
  Age: 50 Year
  Sex: Male

DRUGS (8)
  1. AGGRENOX [Suspect]
     Indication: CEREBRAL ATHEROSCLEROSIS
     Dosage: SEE TEXT (SEE TEXT, 25MG/200MG (1 CAPSULE BID) ), PO
     Route: 049
     Dates: start: 20021101
  2. AGGRENOX [Suspect]
     Indication: CEREBROVASCULAR ACCIDENT
     Dosage: SEE TEXT (SEE TEXT, 25MG/200MG (1 CAPSULE BID) ), PO
     Route: 049
     Dates: start: 20021101
  3. AGGRENOX [Suspect]
     Indication: CEREBROVASCULAR STENOSIS
     Dosage: SEE TEXT (SEE TEXT, 25MG/200MG (1 CAPSULE BID) ), PO
     Route: 049
     Dates: start: 20021101
  4. ATENOLOL [Concomitant]
  5. LIPITOR [Concomitant]
  6. ZESORETIC (PRINZIDE) [Concomitant]
  7. FOLIC ACID [Concomitant]
  8. HYDROCHLOROTHIAZIDE [Concomitant]

REACTIONS (4)
  - DISCOMFORT [None]
  - HYPERHIDROSIS [None]
  - HYPOTENSION [None]
  - RENAL FAILURE CHRONIC [None]
